FAERS Safety Report 22030079 (Version 1)
Quarter: 2023Q1

REPORT INFORMATION
  Report Type: Spontaneous
  Country: NL (occurrence: NL)
  Receive Date: 20230223
  Receipt Date: 20230223
  Transmission Date: 20230417
  Serious: Yes (Hospitalization)
  Sender: FDA-Public Use
  Company Number: NL-MYLANLABS-2023M1019955

PATIENT
  Age: 54 Year
  Sex: Male

DRUGS (4)
  1. MYCOPHENOLATE MOFETIL [Suspect]
     Active Substance: MYCOPHENOLATE MOFETIL
     Indication: Immunosuppressant drug therapy
     Dosage: UNK
     Route: 065
  2. CEFUROXIME [Suspect]
     Active Substance: CEFUROXIME
     Indication: Necrotising fasciitis staphylococcal
     Dosage: 1500 MILLIGRAM, TID, THREE TIMES DAILY
     Route: 065
  3. TOBRAMYCIN [Suspect]
     Active Substance: TOBRAMYCIN
     Indication: Necrotising fasciitis staphylococcal
     Dosage: 7 MILLIGRAM/KILOGRAM, QD
     Route: 065
  4. CLINDAMYCIN [Suspect]
     Active Substance: CLINDAMYCIN
     Indication: Necrotising fasciitis staphylococcal
     Dosage: 600 MILLIGRAM, TID (THREE TIMES DAILY)
     Route: 065

REACTIONS (4)
  - Septic shock [Recovered/Resolved]
  - Necrotising fasciitis staphylococcal [Recovered/Resolved]
  - Staphylococcal abscess [Recovered/Resolved]
  - Drug ineffective [Unknown]
